FAERS Safety Report 9802024 (Version 2)
Quarter: 2014Q1

REPORT INFORMATION
  Report Type: Report from Study
  Country: CL (occurrence: CL)
  Receive Date: 20140107
  Receipt Date: 20140110
  Transmission Date: 20141002
  Serious: Yes (Other)
  Sender: FDA-Public Use
  Company Number: PHHY2014CL001464

PATIENT
  Age: 76 Year
  Sex: Female

DRUGS (3)
  1. TAREG [Suspect]
     Indication: HYPERTENSION
     Dosage: 80 MG IN THE MORNING AND 80 MG IN THE AFTERNOON
     Route: 048
     Dates: start: 2009
  2. AMARYL [Concomitant]
     Dosage: 2 MG, UNK
  3. NEXIUM//ESOMEPRAZOLE MAGNESIUM [Concomitant]
     Indication: GASTROOESOPHAGEAL REFLUX DISEASE
     Dosage: UNK UKN, UNK

REACTIONS (7)
  - Fall [Recovering/Resolving]
  - Blindness unilateral [Not Recovered/Not Resolved]
  - Facial bones fracture [Recovering/Resolving]
  - Upper limb fracture [Recovering/Resolving]
  - Contusion [Recovered/Resolved]
  - Malaise [Recovering/Resolving]
  - Face injury [Unknown]
